FAERS Safety Report 9261264 (Version 1)
Quarter: 2013Q2

REPORT INFORMATION
  Report Type: Report from Study
  Country: CA (occurrence: CA)
  Receive Date: 20130429
  Receipt Date: 20130429
  Transmission Date: 20140414
  Serious: Yes (Death)
  Sender: FDA-Public Use
  Company Number: PHHY2013CA030543

PATIENT
  Age: 74 Year
  Sex: Male

DRUGS (3)
  1. EXJADE [Suspect]
     Indication: MYELODYSPLASTIC SYNDROME
     Dosage: 2000 MG, QD
     Route: 048
     Dates: start: 20130311
  2. TRANEXAMIC ACID [Concomitant]
     Dosage: UNK UKN, TID
  3. CYCLOSPORIN [Concomitant]
     Dosage: UNK UKN, BID

REACTIONS (2)
  - Death [Fatal]
  - Diarrhoea [Unknown]
